FAERS Safety Report 23743468 (Version 1)
Quarter: 2024Q2

REPORT INFORMATION
  Report Type: Spontaneous
  Country: US (occurrence: None)
  Receive Date: 20240413
  Receipt Date: 20240413
  Transmission Date: 20240716
  Serious: Yes (Hospitalization)
  Sender: FDA-Public Use
  Company Number: None

PATIENT
  Age: 27 Year
  Sex: Male
  Weight: 97.65 kg

DRUGS (3)
  1. LASTACAFT [Suspect]
     Active Substance: ALCAFTADINE
     Indication: Seasonal allergy
     Dosage: FREQUENCY : DAILY;?
     Route: 047
     Dates: start: 20240404, end: 20240413
  2. ONE-A-DAY NOS [Concomitant]
     Active Substance: MINERALS\VITAMINS
  3. Allegra 24 hr. allergy medicine [Concomitant]

REACTIONS (1)
  - Chemical burns of eye [None]

NARRATIVE: CASE EVENT DATE: 20240412
